FAERS Safety Report 8377201 (Version 2)
Quarter: 2013Q1

REPORT INFORMATION
  Report Type: Report from Study
  Country: US (occurrence: US)
  Receive Date: 20120128
  Receipt Date: 20130201
  Transmission Date: 20140127
  Serious: No
  Sender: FDA-Public Use
  Company Number: US-ABBOTT-11P-163-0839561-00

PATIENT
  Age: 59 None
  Sex: Female
  Weight: 54.48 kg

DRUGS (11)
  1. HUMIRA [Suspect]
     Indication: RHEUMATOID ARTHRITIS
     Dates: start: 200401
  2. HUMIRA [Suspect]
     Dates: start: 2004, end: 2011
  3. HUMIRA [Suspect]
     Dates: start: 2011
  4. NEURONTIN [Concomitant]
     Indication: INSOMNIA
     Dosage: AT BEDTIME
  5. VICODIN [Concomitant]
     Indication: PAIN
  6. ETODOLAC [Concomitant]
     Indication: ARTHRITIS
  7. HYDROCODONE [Concomitant]
     Indication: ARTHRALGIA
  8. VITAMIN A [Concomitant]
     Indication: PRODUCT USED FOR UNKNOWN INDICATION
  9. VITAMIN B [Concomitant]
     Indication: PRODUCT USED FOR UNKNOWN INDICATION
  10. VITAMIN E [Concomitant]
  11. VITAMIN D [Concomitant]
     Indication: PRODUCT USED FOR UNKNOWN INDICATION

REACTIONS (12)
  - Incorrect drug dosage form administered [Unknown]
  - Rash [Not Recovered/Not Resolved]
  - Fungal skin infection [Unknown]
  - Rash generalised [Unknown]
  - Arthralgia [Unknown]
  - Injection site bruising [Not Recovered/Not Resolved]
  - Arthralgia [Not Recovered/Not Resolved]
  - Injection site pain [Not Recovered/Not Resolved]
  - Arthralgia [Not Recovered/Not Resolved]
  - Arthralgia [Not Recovered/Not Resolved]
  - Pain in extremity [Not Recovered/Not Resolved]
  - Arthralgia [Not Recovered/Not Resolved]
